FAERS Safety Report 8762680 (Version 1)
Quarter: 2012Q4

REPORT INFORMATION
  Report Type: 
  Country: US (occurrence: US)
  Receive Date: 20120830
  Receipt Date: 20120830
  Transmission Date: 20130627
  Serious: Yes (Other)
  Sender: FDA-Public Use
  Company Number: US-ABBOTT-12P-163-0971613-00

PATIENT
  Age: 78 None
  Sex: Female

DRUGS (1)
  1. HUMIRA 40 MG/ 0.8 ML PRE-FILLED SYRINGE [Suspect]
     Indication: RHEUMATOID ARTHRITIS
     Dates: start: 2002, end: 20120820

REACTIONS (6)
  - Stress cardiomyopathy [Not Recovered/Not Resolved]
  - Myocardial infarction [Not Recovered/Not Resolved]
  - Feeling abnormal [Not Recovered/Not Resolved]
  - Pneumonia [Not Recovered/Not Resolved]
  - Colitis [Not Recovered/Not Resolved]
  - Urinary tract infection [Not Recovered/Not Resolved]
